FAERS Safety Report 25236070 (Version 1)
Quarter: 2025Q2

REPORT INFORMATION
  Report Type: Spontaneous
  Country: US (occurrence: None)
  Receive Date: 20250424
  Receipt Date: 20250424
  Transmission Date: 20250717
  Serious: Yes (Other)
  Sender: FDA-CTU
  Company Number: None

PATIENT
  Sex: Male

DRUGS (1)
  1. ABIRATERONE ACETATE [Suspect]
     Active Substance: ABIRATERONE ACETATE
     Indication: Prostate cancer
     Dosage: FREQUENCY : DAILY;?
     Route: 048
     Dates: start: 20241101

REACTIONS (7)
  - Therapy interrupted [None]
  - Quality of life decreased [None]
  - Brain fog [None]
  - Hallucination [None]
  - Eating disorder [None]
  - Insomnia [None]
  - Nocturia [None]
